FAERS Safety Report 8788644 (Version 1)
Quarter: 2012Q4

REPORT INFORMATION
  Report Type: 
  Country: US (occurrence: US)
  Receive Date: 20120917
  Receipt Date: 20120917
  Transmission Date: 20130627
  Serious: No
  Sender: FDA-Public Use
  Company Number: US-JNJFOC-20120903723

PATIENT
  Age: 64 Year
  Sex: Male
  Weight: 76.2 kg

DRUGS (1)
  1. SANDOZ FENTANYL TRANSDERMAL SYSTEM [Suspect]
     Indication: SCIATICA
     Route: 062
     Dates: start: 201207

REACTIONS (2)
  - Poor quality drug administered [Not Recovered/Not Resolved]
  - Product quality issue [Unknown]
